FAERS Safety Report 8714317 (Version 2)
Quarter: 2012Q4

REPORT INFORMATION
  Report Type: 
  Country: US (occurrence: US)
  Receive Date: 20120809
  Receipt Date: 20120926
  Transmission Date: 20130627
  Serious: Yes (Hospitalization)
  Sender: FDA-Public Use
  Company Number: US-BIOGENIDEC-2005BI021649

PATIENT
  Age: 39 Year
  Sex: Female

DRUGS (1)
  1. AVONEX [Suspect]
     Indication: MULTIPLE SCLEROSIS
     Route: 030
     Dates: start: 19990901

REACTIONS (4)
  - Multiple sclerosis relapse [Recovered/Resolved]
  - Injection site rash [Recovered/Resolved]
  - Hepatic enzyme increased [Recovered/Resolved]
  - Injection site bruising [Recovered/Resolved]
